FAERS Safety Report 4680267-5 (Version None)
Quarter: 2005Q2

REPORT INFORMATION
  Report Type: 
  Country: None (occurrence: None)
  Receive Date: 20050601
  Receipt Date: 20050520
  Transmission Date: 20051028
  Serious: Yes (Hospitalization)
  Sender: FDA-Public Use
  Company Number: ESWYE094506OCT04

PATIENT
  Age: 69 Year
  Sex: Male

DRUGS (47)
  1. RAPAMUNE [Suspect]
     Indication: PROPHYLAXIS AGAINST TRANSPLANT REJECTION
     Dosage: 6 MG 1X PER 1 DAY, ORAL
     Route: 048
     Dates: start: 20040717, end: 20040929
  2. PREDNISONE [Concomitant]
  3. CELLCEPT [Concomitant]
  4. ATORVASTATIN CALCIUM [Concomitant]
  5. OMEPRAZOLE [Concomitant]
  6. MASTICAL (CALCIUM CARBONATE) [Concomitant]
  7. ROCALTROL [Concomitant]
  8. ADALAT OROS (NIFEDIPINE) [Concomitant]
  9. SEPTRIN FORTE (SULFAMETHOXAZOLE/TRIMETHOPRIM) [Concomitant]
  10. SIMULECT [Concomitant]
  11. LEXATIN (BROMAZEPAM) [Concomitant]
  12. TOBRAMYCIN SULFATE [Concomitant]
  13. AMPICILLIN [Concomitant]
  14. CLOXACILLIN (CLOXACILLIN) [Concomitant]
  15. PRIMPERAN TAB [Concomitant]
  16. NOLOTIL (METAMIZOLE MAGNESIUM) [Concomitant]
  17. HUMALOG [Concomitant]
  18. CALCIUM GLUCONATE [Concomitant]
  19. FORTAM (CEFTAZIDIME) [Concomitant]
  20. TARGOCID [Concomitant]
  21. CEFUROXIME AXETIL [Concomitant]
  22. MANNITOL [Suspect]
  23. FUROSEMIDE [Concomitant]
  24. DOPAMINE (DOPAMINE) [Concomitant]
  25. SODIUM BICARBONATE IN PLASTIC CONTAINER [Concomitant]
  26. PROPACETAMOL (PROPACETAMOL) [Concomitant]
  27. POTASSIUM CHLORIDE [Concomitant]
  28. TERMALGIN (PARACETAMOL) [Concomitant]
  29. BOI K (POTASSIUM ASCORBATE) [Concomitant]
  30. MYCOSTATIN [Concomitant]
  31. CARDURA [Concomitant]
  32. LEVOFLOXACIN [Concomitant]
  33. ALBUMIN (HUMAN) [Concomitant]
  34. POTASSIUM ACETATE [Concomitant]
  35. ACETAMINOPHEN [Concomitant]
  36. TAZOCEL (PIPERACILLIN/TAZOBACTAM) [Concomitant]
  37. ALMAX (ALMAGATE) [Concomitant]
  38. INSULIN [Concomitant]
  39. CARDURA [Concomitant]
  40. BUSCAPINA (HYOSCINE BUTYLBROMIDE) [Concomitant]
  41. DIFLUCAN [Concomitant]
  42. IMMUNE GLOBULIN INTRAVENOUS (HUMAN) [Concomitant]
  43. GANCICLOVIR SODIUM [Concomitant]
  44. SOLTRIM (SULFAMETHOXAZOLE/TRIMETHOPRIM) [Concomitant]
  45. SEPTRA [Concomitant]
  46. ZANTAC [Concomitant]
  47. CANCIDAS [Concomitant]

REACTIONS (10)
  - BLOOD LACTATE DEHYDROGENASE INCREASED [None]
  - GASTROENTERITIS [None]
  - KIDNEY TRANSPLANT REJECTION [None]
  - MULTI-ORGAN FAILURE [None]
  - NEPHROPATHY TOXIC [None]
  - PNEUMONIA [None]
  - RED BLOOD CELL SCHISTOCYTES PRESENT [None]
  - SEPSIS [None]
  - SHOCK [None]
  - THROMBOTIC MICROANGIOPATHY [None]
